FAERS Safety Report 4919957-5 (Version None)
Quarter: 2006Q1

REPORT INFORMATION
  Report Type: 
  Country: None (occurrence: None)
  Receive Date: 20060216
  Receipt Date: 20060209
  Transmission Date: 20060701
  Serious: Yes (Death, Life-Threatening, Hospitalization)
  Sender: FDA-Public Use
  Company Number: 2006EU000358

PATIENT
  Age: 53 Year
  Sex: Male

DRUGS (7)
  1. FK506(TACROLIMUS CAPSULES) [Suspect]
     Indication: RENAL TRANSPLANT
     Dosage: 3 MG, BID, ORAL
     Route: 048
     Dates: start: 20041022, end: 20041130
  2. DACLIZUMAB (DACLIZUMAB) [Suspect]
     Indication: RENAL TRANSPLANT
     Dosage: 2 MG/KG, UID/QD, IV NOS
     Route: 042
     Dates: start: 20041021, end: 20041128
  3. MYCOPHENOLATE MOFETIL(MYCOPHENOLATE MOFETIL) [Suspect]
     Indication: RENAL TRANSPLANT
     Dosage: 500 MG, BID, ORAL
     Route: 048
     Dates: start: 20041022, end: 20041114
  4. METHYLPREDNISOLONE [Suspect]
     Indication: RENAL TRANSPLANT
     Dosage: IV NOS
     Route: 042
     Dates: start: 20041021
  5. METOPROLOL (METOPROLOL) [Concomitant]
  6. DIFLUCAN [Concomitant]
  7. BELOC-ZOC MITE (METOPROLOL SUCCINATE) [Concomitant]

REACTIONS (6)
  - CANDIDA PNEUMONIA [None]
  - CANDIDA SEPSIS [None]
  - FUNGAL SEPSIS [None]
  - PNEUMONIA ASPERGILLUS [None]
  - RETROPERITONEAL HAEMATOMA [None]
  - SUBCUTANEOUS ABSCESS [None]
